FAERS Safety Report 9051210 (Version 1)
Quarter: 2013Q1

REPORT INFORMATION
  Report Type: Spontaneous
  Country: US (occurrence: US)
  Receive Date: 20130206
  Receipt Date: 20130206
  Transmission Date: 20140127
  Serious: Yes (Death, Hospitalization)
  Sender: FDA-Public Use
  Company Number: US-JNJFOC-20130201527

PATIENT
  Sex: Female

DRUGS (5)
  1. NORELGESTROMIN/ETHINYL ESTRADIOL [Suspect]
     Indication: CONTRACEPTION
     Dosage: 6.0MG/ 750 MCG
     Route: 062
  2. NORGESTIMATE/ETHINYL ESTRADIOL [Suspect]
     Indication: CONTRACEPTION
     Dosage: 0.18-0.25 MG/35MCG
     Route: 065
  3. LEVONORGESTREL, ETHINYLESTRADIOL [Suspect]
     Indication: CONTRACEPTION
     Dosage: 0.10 MG/20MCG
     Route: 065
  4. LEVONORGESTREL, ETHINYLESTRADIOL [Suspect]
     Indication: CONTRACEPTION
     Dosage: 0.15 MG/30MCG
     Route: 065
  5. NORETHINDRONE/ETHINYL ESTRADIOL [Suspect]
     Indication: CONTRACEPTION
     Dosage: 1 MG /20 MCG
     Route: 065

REACTIONS (3)
  - Death [Fatal]
  - Arterial thrombosis [Unknown]
  - Embolism venous [Unknown]
